FAERS Safety Report 5845250-2 (Version None)
Quarter: 2008Q3

REPORT INFORMATION
  Report Type: 
  Country: None (occurrence: None)
  Receive Date: 20080814
  Receipt Date: 20080808
  Transmission Date: 20090109
  Serious: Yes (Other)
  Sender: FDA-Public Use
  Company Number: B0533075A

PATIENT
  Age: 2 Month
  Sex: Female
  Weight: 4.7 kg

DRUGS (7)
  1. FORTAM [Suspect]
     Indication: CYSTIC FIBROSIS
     Dates: start: 20070601, end: 20070601
  2. COLISTIN SULFATE [Concomitant]
     Indication: CYSTIC FIBROSIS
  3. CREON [Concomitant]
  4. EPHYNAL [Concomitant]
  5. VENTOLIN [Concomitant]
  6. COLECALCIFEROL [Concomitant]
  7. CALCIUM [Concomitant]

REACTIONS (2)
  - DRUG EXPOSURE VIA BREAST MILK [None]
  - FEEDING DISORDER OF INFANCY OR EARLY CHILDHOOD [None]
